FAERS Safety Report 12607210 (Version 1)
Quarter: 2016Q3

REPORT INFORMATION
  Report Type: Spontaneous
  Country: JP (occurrence: JP)
  Receive Date: 20160729
  Receipt Date: 20160729
  Transmission Date: 20161109
  Serious: Yes (Other)
  Sender: FDA-Public Use
  Company Number: JP-PFIZER INC-2016361938

PATIENT
  Age: 54 Year
  Sex: Male
  Weight: 66 kg

DRUGS (3)
  1. INLYTA [Suspect]
     Active Substance: AXITINIB
     Indication: RENAL CELL CARCINOMA
     Dosage: 10 MG, 2X/DAY
     Route: 048
     Dates: start: 20140414
  2. BLOPRESS [Concomitant]
     Active Substance: CANDESARTAN CILEXETIL
     Dosage: 8 MG, 1X/DAY
     Route: 048
  3. URSO [Concomitant]
     Active Substance: URSODIOL
     Dosage: 100 MG, DAILY

REACTIONS (1)
  - Renal impairment [Not Recovered/Not Resolved]
